FAERS Safety Report 5627685-6 (Version None)
Quarter: 2008Q1

REPORT INFORMATION
  Report Type: 
  Country: None (occurrence: None)
  Receive Date: 20080214
  Receipt Date: 20080214
  Transmission Date: 20080703
  Serious: Yes (Death)
  Sender: FDA-Public Use
  Company Number: None

PATIENT
  Age: 66 Year
  Sex: Male
  Weight: 97 kg

DRUGS (1)
  1. TAMIFLU [Suspect]
     Indication: INFLUENZA
     Dosage: 75MG  Q12  PO  1 DOSE
     Route: 048

REACTIONS (5)
  - CARDIO-RESPIRATORY ARREST [None]
  - ENDOTRACHEAL INTUBATION COMPLICATION [None]
  - LARYNGEAL DISORDER [None]
  - LARYNGEAL OEDEMA [None]
  - RESPIRATORY RATE INCREASED [None]
